FAERS Safety Report 8028717-0 (Version None)
Quarter: 2012Q1

REPORT INFORMATION
  Report Type: 
  Country: None (occurrence: None)
  Receive Date: 20120104
  Receipt Date: 20111228
  Transmission Date: 20120608
  Serious: Yes (Other)
  Sender: FDA-Public Use
  Company Number: AUR-APL-2011-06313

PATIENT
  Sex: Female

DRUGS (1)
  1. ALENDRONIC ACID (ALENDORIC ACID) (ALENDRONIC ACID, ALENDRONIC ACID) [Suspect]
     Indication: PRODUCT USED FOR UNKNOWN INDICATION
     Dosage: ORAL
     Route: 048

REACTIONS (3)
  - OESOPHAGEAL STENOSIS [None]
  - DYSPHAGIA [None]
  - DENTAL OPERATION [None]
